FAERS Safety Report 6859642-6 (Version None)
Quarter: 2010Q3

REPORT INFORMATION
  Report Type: 
  Country: None (occurrence: None)
  Receive Date: 20100719
  Receipt Date: 20080505
  Transmission Date: 20110219
  Serious: No
  Sender: FDA-Public Use
  Company Number: US-PFIZER INC-2008020275

PATIENT
  Sex: Female
  Weight: 52.2 kg

DRUGS (4)
  1. CHANTIX [Suspect]
     Indication: SMOKING CESSATION THERAPY
     Route: 048
     Dates: start: 20080220
  2. VICODIN [Concomitant]
  3. OTHER HYPNOTICS AND SEDATIVES [Concomitant]
  4. HYDROCODONE [Concomitant]

REACTIONS (12)
  - ANXIETY [None]
  - DECREASED APPETITE [None]
  - DEPRESSION [None]
  - DRUG DOSE OMISSION [None]
  - DYSGEUSIA [None]
  - INCORRECT DOSE ADMINISTERED [None]
  - MALAISE [None]
  - NAUSEA [None]
  - SOMNOLENCE [None]
  - TOOTHACHE [None]
  - VOMITING [None]
  - WEIGHT DECREASED [None]
